FAERS Safety Report 4423290-8 (Version None)
Quarter: 2004Q3

REPORT INFORMATION
  Report Type: 
  Country: None (occurrence: None)
  Receive Date: 20040811
  Receipt Date: 20040805
  Transmission Date: 20050211
  Serious: Yes (Hospitalization)
  Sender: FDA-Public Use
  Company Number: CA-GLAXOSMITHKLINE-A0521211A

PATIENT
  Age: 39 Year
  Sex: Female
  Weight: 99.1 kg

DRUGS (8)
  1. COMBIVIR [Suspect]
     Indication: HIV INFECTION
     Dosage: 300MG TWICE PER DAY
     Route: 048
     Dates: start: 20040101, end: 20040628
  2. VALPROIC ACID [Suspect]
     Indication: PSYCHOTIC DISORDER
     Route: 048
     Dates: start: 20040403, end: 20040628
  3. EFAVIRENZ [Concomitant]
     Route: 048
  4. SEROQUEL [Concomitant]
  5. PAXIL [Concomitant]
  6. ADVAIR [Concomitant]
  7. VENTOLIN [Concomitant]
  8. ADVIL [Concomitant]

REACTIONS (14)
  - ANAEMIA MACROCYTIC [None]
  - ANGINA PECTORIS [None]
  - ANOREXIA [None]
  - ASTHENIA [None]
  - BACK PAIN [None]
  - DYSPNOEA [None]
  - LEUKOPENIA [None]
  - NECK PAIN [None]
  - PAIN IN EXTREMITY [None]
  - PALLOR [None]
  - SOMNOLENCE [None]
  - SYNCOPE [None]
  - TINNITUS [None]
  - WEIGHT DECREASED [None]
